FAERS Safety Report 4681278-6 (Version None)
Quarter: 2005Q2

REPORT INFORMATION
  Report Type: 
  Country: None (occurrence: None)
  Receive Date: 20050602
  Receipt Date: 20050602
  Transmission Date: 20051028
  Serious: Yes (Life-Threatening, Hospitalization)
  Sender: FDA-Public Use
  Company Number: None

PATIENT
  Age: 52 Year
  Sex: Male
  Weight: 92.9874 kg

DRUGS (2)
  1. KETEK [Suspect]
     Indication: SINUS DISORDER
     Dosage: 800MG    DAILY    ORAL
     Route: 048
     Dates: start: 20050202, end: 20050206
  2. GILTUSS TR [Concomitant]

REACTIONS (8)
  - ABDOMINAL PAIN [None]
  - CARDIAC DISORDER [None]
  - FATIGUE [None]
  - FLUID RETENTION [None]
  - JAUNDICE [None]
  - LIVER DISORDER [None]
  - LUNG DISORDER [None]
  - PYREXIA [None]
